FAERS Safety Report 6929135-6 (Version None)
Quarter: 2010Q3

REPORT INFORMATION
  Report Type: 
  Country: None (occurrence: None)
  Receive Date: 20100812
  Receipt Date: 20100728
  Transmission Date: 20110219
  Serious: Yes (Hospitalization)
  Sender: FDA-Public Use
  Company Number: DSA_43635_2010

PATIENT
  Age: 61 Year
  Sex: Male

DRUGS (11)
  1. ENALAPRIL MALEATE [Suspect]
     Indication: PRODUCT USED FOR UNKNOWN INDICATION
     Dosage: (40 MG ORAL)
     Route: 048
  2. AMITRIPTYLINE HYDROCHLORIDE [Concomitant]
  3. ASPIRIN [Concomitant]
  4. ATENOLOL [Concomitant]
  5. ATORVASTATIN CALCIUM [Concomitant]
  6. CARBAMAZEPINE [Concomitant]
  7. CLONAZEPAM [Concomitant]
  8. FUROSEMIDE [Concomitant]
  9. INSULIN [Concomitant]
  10. PANTOPRAZOLE [Concomitant]
  11. SPIRONOLACTONE [Concomitant]

REACTIONS (6)
  - DIARRHOEA [None]
  - DUODENAL ULCER HAEMORRHAGE [None]
  - HYPERKALAEMIA [None]
  - NAUSEA [None]
  - RENAL FAILURE ACUTE [None]
  - VOMITING [None]
